FAERS Safety Report 22952264 (Version 4)
Quarter: 2024Q2

REPORT INFORMATION
  Report Type: Report from Study
  Country: US (occurrence: US)
  Receive Date: 20230918
  Receipt Date: 20240402
  Transmission Date: 20240716
  Serious: Yes (Other)
  Sender: FDA-Public Use
  Company Number: US-002147023-NVSC2023US197814

PATIENT
  Sex: Female

DRUGS (20)
  1. COSENTYX [Suspect]
     Active Substance: SECUKINUMAB
     Indication: Ankylosing spondylitis
     Dosage: 300 MG, QMO (INJECT 2 SYRINGE INTO THE SKIN EVERY 28 DAYS)
     Route: 065
     Dates: start: 20221004, end: 20230705
  2. COSENTYX [Suspect]
     Active Substance: SECUKINUMAB
     Indication: Overlap syndrome
  3. PRILOSEC [Concomitant]
     Active Substance: OMEPRAZOLE MAGNESIUM
     Indication: Product used for unknown indication
     Dosage: 1 DOSAGE FORM, QD (EVERY MORNING)
     Route: 048
  4. TOPAMAX [Concomitant]
     Active Substance: TOPIRAMATE
     Indication: Product used for unknown indication
     Dosage: 1 DOSAGE FORM, BID
     Route: 048
  5. DESYREL [Concomitant]
     Active Substance: TRAZODONE HYDROCHLORIDE
     Indication: Product used for unknown indication
     Dosage: 100 MG, QD (AT BEDTIME, TAKE 1/2 TO WHOLE AT A BEDTIME)
     Route: 048
  6. VALTREX [Concomitant]
     Active Substance: VALACYCLOVIR HYDROCHLORIDE
     Indication: Product used for unknown indication
     Dosage: 1000 MG, QD (INCREASE TO TWICE A DAILY IF BREAKOUT OCCOUR)
     Route: 048
  7. CYANOCOBALAMIN [Concomitant]
     Active Substance: CYANOCOBALAMIN
     Indication: Product used for unknown indication
     Dosage: 1000 UG, QD
     Route: 048
  8. VITAMIN C [Concomitant]
     Active Substance: ASCORBIC ACID
     Indication: Product used for unknown indication
     Dosage: 1 DOSAGE FORM, QD
     Route: 048
  9. VITAMIN D3 [Concomitant]
     Active Substance: CHOLECALCIFEROL
     Indication: Product used for unknown indication
     Dosage: 1 DOSAGE FORM, QD (EVERY EVENING)
     Route: 065
  10. OMNICEF [Concomitant]
     Active Substance: CEFDINIR
     Indication: Product used for unknown indication
     Dosage: 300 MG, BID
     Route: 048
  11. FERROUS SULFATE [Concomitant]
     Active Substance: FERROUS SULFATE
     Indication: Product used for unknown indication
     Dosage: 325 MG, QD (EVERY EVENING)
     Route: 048
  12. ALLEGRA [Concomitant]
     Active Substance: FEXOFENADINE HYDROCHLORIDE
     Indication: Product used for unknown indication
     Dosage: 180 MG, QD
     Route: 048
  13. FEZOLINETANT [Concomitant]
     Active Substance: FEZOLINETANT
     Indication: Product used for unknown indication
     Dosage: 45 MG, QD
     Route: 048
  14. DIFLUCAN [Concomitant]
     Active Substance: FLUCONAZOLE
     Indication: Product used for unknown indication
     Dosage: 150 MG EVERY 3 DAYS
     Route: 048
  15. FLONASE [Concomitant]
     Active Substance: FLUTICASONE PROPIONATE
     Indication: Product used for unknown indication
     Dosage: 1 DOSAGE FORM, QD (1 SPRAY BOTH NOSTRIL DAILY)
  16. FOLIC ACID [Concomitant]
     Active Substance: FOLIC ACID
     Indication: Product used for unknown indication
     Dosage: 1 MG, QD
     Route: 048
  17. PLAQUENIL [Concomitant]
     Active Substance: HYDROXYCHLOROQUINE SULFATE
     Indication: Product used for unknown indication
     Dosage: 300 MG, QD
     Route: 048
  18. MOBIC [Concomitant]
     Active Substance: MELOXICAM
     Indication: Product used for unknown indication
     Dosage: 15 MG, QD
     Route: 048
  19. ROBAXIN [Concomitant]
     Active Substance: METHOCARBAMOL
     Indication: Product used for unknown indication
     Dosage: 500 MG, TID AS NEEDED
     Route: 048
  20. METHOTREXATE [Concomitant]
     Active Substance: METHOTREXATE
     Indication: Product used for unknown indication
     Dosage: 17.5 MG, QW AT 0900
     Route: 048

REACTIONS (10)
  - Ankylosing spondylitis [Not Recovered/Not Resolved]
  - Arthralgia [Unknown]
  - Musculoskeletal stiffness [Unknown]
  - Scar [Unknown]
  - Pain [Unknown]
  - Swelling [Unknown]
  - Joint swelling [Unknown]
  - Hypoaesthesia [Unknown]
  - Back pain [Unknown]
  - Drug ineffective [Unknown]
